FAERS Safety Report 11701988 (Version 1)
Quarter: 2015Q4

REPORT INFORMATION
  Report Type: Spontaneous
  Country: US (occurrence: US)
  Receive Date: 20151105
  Receipt Date: 20151105
  Transmission Date: 20160304
  Serious: Yes (Death)
  Sender: FDA-Public Use
  Company Number: US-SA-2015SA175434

PATIENT
  Age: 65 Year
  Sex: Male

DRUGS (5)
  1. SOLOSTAR [Concomitant]
     Active Substance: DEVICE
     Indication: TYPE 2 DIABETES MELLITUS
     Dates: start: 201510, end: 20151023
  2. TOUJEO [Suspect]
     Active Substance: INSULIN GLARGINE
     Indication: TYPE 2 DIABETES MELLITUS
     Dosage: DOSE:65 UNIT(S)
     Route: 065
     Dates: start: 201510, end: 20151023
  3. LANTUS [Concomitant]
     Active Substance: INSULIN GLARGINE
     Dosage: DOSE:40 UNIT(S)
  4. SOLOSTAR [Concomitant]
     Active Substance: DEVICE
     Indication: TYPE 2 DIABETES MELLITUS
     Dates: start: 20151009, end: 20151019
  5. TOUJEO [Suspect]
     Active Substance: INSULIN GLARGINE
     Indication: TYPE 2 DIABETES MELLITUS
     Dosage: DOSE:60 UNIT(S)
     Route: 058
     Dates: start: 20151009, end: 20151019

REACTIONS (2)
  - Glycosylated haemoglobin increased [Unknown]
  - Death [Fatal]

NARRATIVE: CASE EVENT DATE: 201510
